FAERS Safety Report 6221591-4 (Version None)
Quarter: 2009Q2

REPORT INFORMATION
  Report Type: 
  Country: None (occurrence: None)
  Receive Date: 20090608
  Receipt Date: 20090528
  Transmission Date: 20091009
  Serious: Yes (Other)
  Sender: FDA-Public Use
  Company Number: GXKR2009GB06319

PATIENT
  Age: 38 Year
  Sex: Female

DRUGS (6)
  1. CODEINE PHOSPHATE (NGX) (CODEINE PHOSPHATE) UNKNOWN [Suspect]
  2. LANSOPRAZOLE [Suspect]
  3. AMITRIPTYLINE HYDROCHLORIDE [Suspect]
  4. ARAVA [Suspect]
     Indication: RHEUMATOID ARTHRITIS
     Dosage: 20 MG, ORAL
     Route: 048
     Dates: start: 20040610, end: 20081215
  5. NAPROXEN [Suspect]
  6. ACETAMINOPHEN [Suspect]

REACTIONS (3)
  - ABORTION SPONTANEOUS [None]
  - DRUG EXPOSURE DURING PREGNANCY [None]
  - DRUG TOLERANCE DECREASED [None]
